FAERS Safety Report 15250384 (Version 1)
Quarter: 2018Q3

REPORT INFORMATION
  Report Type: Report from Study
  Country: CA (occurrence: CA)
  Receive Date: 20180807
  Receipt Date: 20180807
  Transmission Date: 20181010
  Serious: Yes (Hospitalization)
  Sender: FDA-Public Use
  Company Number: CA-JNJFOC-20180619146

PATIENT
  Age: 42 Year
  Sex: Female
  Weight: 92 kg

DRUGS (2)
  1. STELARA [Suspect]
     Active Substance: USTEKINUMAB
     Indication: CROHN^S DISEASE
     Route: 042
     Dates: start: 20180413
  2. STELARA [Suspect]
     Active Substance: USTEKINUMAB
     Indication: CROHN^S DISEASE
     Route: 042
     Dates: start: 20180613

REACTIONS (2)
  - Abdominal pain [Recovering/Resolving]
  - Small intestinal resection [Recovering/Resolving]

NARRATIVE: CASE EVENT DATE: 20180515
